FAERS Safety Report 4808482-8 (Version None)
Quarter: 2005Q4

REPORT INFORMATION
  Report Type: 
  Country: None (occurrence: None)
  Receive Date: 20051021
  Receipt Date: 20030812
  Transmission Date: 20060501
  Serious: No
  Sender: FDA-Public Use
  Company Number: DE_030811840

PATIENT
  Age: 44 Year
  Sex: Female

DRUGS (2)
  1. ZYPREXA [Suspect]
     Indication: SCHIZOPHRENIA
     Dosage: 20 MG/DAY
     Dates: start: 20000701, end: 20030812
  2. EDRONAX (REBOXETINE) [Concomitant]

REACTIONS (2)
  - EOSINOPHILIA [None]
  - THROMBOCYTOPENIA [None]
